FAERS Safety Report 18323459 (Version 1)
Quarter: 2020Q3

REPORT INFORMATION
  Report Type: Spontaneous
  Country: US (occurrence: US)
  Receive Date: 20200928
  Receipt Date: 20200928
  Transmission Date: 20201103
  Serious: Yes (Hospitalization, Other)
  Sender: FDA-Public Use
  Company Number: US-PFIZER INC-2020372825

PATIENT
  Age: 73 Year
  Sex: Male
  Weight: 88.45 kg

DRUGS (1)
  1. DILANTIN [Suspect]
     Active Substance: PHENYTOIN
     Indication: SEIZURE
     Dosage: 300 MG, DAILY (100MG PO (PER ORAL) THREE A DAY)
     Route: 048

REACTIONS (5)
  - Macular fibrosis [Not Recovered/Not Resolved]
  - Cataract [Recovered/Resolved]
  - Dry eye [Unknown]
  - Inguinal hernia [Recovered/Resolved]
  - Cataract [Recovered/Resolved]

NARRATIVE: CASE EVENT DATE: 20171030
